FAERS Safety Report 8159093-0 (Version None)
Quarter: 2012Q1

REPORT INFORMATION
  Report Type: 
  Country: None (occurrence: None)
  Receive Date: 20120103
  Receipt Date: 20110908
  Transmission Date: 20120608
  Serious: No
  Sender: FDA-Public Use
  Company Number: AE-2011-001429

PATIENT
  Age: 50 Year
  Sex: Male
  Weight: 88.4514 kg

DRUGS (4)
  1. CITALOPRAM HYDROBROMIDE [Concomitant]
  2. INCIVEK [Suspect]
     Dosage: 2250 MG (750 MG, 3 IN 1 D), ORAL
     Route: 048
     Dates: start: 20110803
  3. RIBAPAK (RIBAVIRIN) [Concomitant]
  4. PEGINTRON (PEGINTERFERON ALFA-2A) [Concomitant]

REACTIONS (5)
  - CHILLS [None]
  - FEELING ABNORMAL [None]
  - INSOMNIA [None]
  - DYSPNOEA [None]
  - CHEST DISCOMFORT [None]
